FAERS Safety Report 7280747-2 (Version None)
Quarter: 2011Q1

REPORT INFORMATION
  Report Type: 
  Country: None (occurrence: None)
  Receive Date: 20110126
  Receipt Date: 20110113
  Transmission Date: 20110831
  Serious: Yes (Other)
  Sender: FDA-Public Use
  Company Number: 024132

PATIENT
  Age: 62 Year
  Sex: Female

DRUGS (4)
  1. LACOSAMIDE [Suspect]
     Indication: CONVULSION
     Dosage: (50 MG BID), (200 MG BID)
  2. TOPAMAX [Suspect]
     Indication: CONVULSION
     Dosage: (DOWN TITRATING DOSE)
  3. LYRICA [Concomitant]
  4. CLONAZEPAM [Concomitant]

REACTIONS (5)
  - EATING DISORDER [None]
  - TREATMENT NONCOMPLIANCE [None]
  - INSOMNIA [None]
  - STRESS [None]
  - UPPER LIMB FRACTURE [None]
